FAERS Safety Report 9257291 (Version 1)
Quarter: 2013Q2

REPORT INFORMATION
  Report Type: Spontaneous
  Country: ES (occurrence: ES)
  Receive Date: 20130426
  Receipt Date: 20130426
  Transmission Date: 20140414
  Serious: Yes (Other)
  Sender: FDA-Public Use
  Company Number: PHHY2013ES041110

PATIENT
  Age: 55 Year
  Sex: Female

DRUGS (3)
  1. VOLTAREN RETARD [Suspect]
     Dosage: UNK UKN, UNK
     Route: 048
     Dates: start: 20130109
  2. INZITAN [Suspect]
     Indication: SCIATICA
     Dosage: 2 ML, QD
     Route: 030
     Dates: start: 20130109, end: 20130115
  3. VALIUM [Concomitant]
     Dosage: UNK UKN, UNK

REACTIONS (2)
  - Haemorrhage [Unknown]
  - Paraesthesia [Unknown]
